FAERS Safety Report 8547783 (Version 10)
Quarter: 2014Q2

REPORT INFORMATION
  Report Type: Spontaneous
  Country: CA (occurrence: CA)
  Receive Date: 20120504
  Receipt Date: 20140417
  Transmission Date: 20141212
  Serious: Yes (Hospitalization, Other)
  Sender: FDA-Public Use
  Company Number: CA-ROCHE-1064772

PATIENT
  Sex: Female

DRUGS (5)
  1. XOLAIR [Suspect]
     Indication: ASTHMA
     Route: 058
     Dates: start: 20120327
  2. ADVAIR [Concomitant]
  3. ALVESCO [Concomitant]
     Dosage: 8 PUFF PER DAY
     Route: 065
     Dates: start: 20120809
  4. SALBUTAMOL [Concomitant]
  5. SINGULAIR [Concomitant]

REACTIONS (8)
  - Influenza like illness [Unknown]
  - Chest pain [Unknown]
  - Blood pressure increased [Not Recovered/Not Resolved]
  - Cholelithiasis [Unknown]
  - Gait disturbance [Unknown]
  - Arthralgia [Unknown]
  - Erythema [Recovering/Resolving]
  - Pruritus [Unknown]
